FAERS Safety Report 20278955 (Version 3)
Quarter: 2022Q2

REPORT INFORMATION
  Report Type: Other
  Country: DO (occurrence: DO)
  Receive Date: 20220103
  Receipt Date: 20220404
  Transmission Date: 20220721
  Serious: Yes (Other)
  Sender: FDA-Public Use
  Company Number: DO-002147023-NVSC2021DO282765

PATIENT
  Sex: Female

DRUGS (3)
  1. XOLAIR [Suspect]
     Active Substance: OMALIZUMAB
     Indication: Hypersensitivity pneumonitis
     Route: 030
     Dates: start: 202102
  2. XOLAIR [Suspect]
     Active Substance: OMALIZUMAB
     Route: 030
  3. XOLAIR [Suspect]
     Active Substance: OMALIZUMAB
     Route: 058
     Dates: start: 202110

REACTIONS (8)
  - Hypersensitivity [Unknown]
  - Erythema [Unknown]
  - Malaise [Unknown]
  - Food allergy [Unknown]
  - Dizziness [Recovering/Resolving]
  - Pain [Unknown]
  - Somnolence [Unknown]
  - Off label use [Unknown]
